FAERS Safety Report 6463111-5 (Version None)
Quarter: 2009Q4

REPORT INFORMATION
  Report Type: 
  Country: None (occurrence: None)
  Receive Date: 20091123
  Receipt Date: 20091112
  Transmission Date: 20100525
  Serious: Yes (Hospitalization)
  Sender: FDA-Public Use
  Company Number: 2009019239

PATIENT
  Age: 61 Year
  Sex: Male
  Weight: 91 kg

DRUGS (3)
  1. TRISENOX [Suspect]
     Indication: ACUTE MYELOID LEUKAEMIA
     Dosage: (0.3 MG/KG, CYCLE 2 DAYS 1-5 QW), INTRAVENOUS DRIP
     Route: 041
     Dates: start: 20091103
  2. DECITABINE (DECITABINE) [Suspect]
     Indication: ACUTE MYELOID LEUKAEMIA
     Dosage: (20 MG/M2, CYCLE 2 DAYS 1-5), INTRAVENOUS
     Route: 042
     Dates: start: 20091102, end: 20091103
  3. ASCORBIC ACID [Suspect]
     Indication: ACUTE MYELOID LEUKAEMIA
     Dosage: (100 MG, CYCLE 2 DAYS 1-5 QW), INTRAVENOUS
     Route: 042
     Dates: start: 20091103

REACTIONS (2)
  - PLEURAL EFFUSION [None]
  - PNEUMONIA [None]
